FAERS Safety Report 19432431 (Version 3)
Quarter: 2021Q4

REPORT INFORMATION
  Report Type: Report from Study
  Country: CA (occurrence: CA)
  Receive Date: 20210617
  Receipt Date: 20211029
  Transmission Date: 20220303
  Serious: Yes (Hospitalization)
  Sender: FDA-Public Use
  Company Number: CA-OTSUKA-2021_020112

PATIENT
  Age: 61 Year
  Sex: Male
  Weight: 84.5 kg

DRUGS (11)
  1. BUSULFAN [Suspect]
     Active Substance: BUSULFAN
     Indication: Autologous haematopoietic stem cell transplant
     Dosage: 267.7 MG, QD
     Route: 042
     Dates: start: 20140326, end: 20140328
  2. MELPHALAN [Suspect]
     Active Substance: MELPHALAN
     Indication: Autologous haematopoietic stem cell transplant
     Dosage: 294 MG ONCE
     Route: 042
     Dates: start: 20140329, end: 20140329
  3. LENALIDOMIDE [Suspect]
     Active Substance: LENALIDOMIDE
     Indication: Autologous haematopoietic stem cell transplant
     Dosage: 5 MG OD
     Route: 048
     Dates: start: 20140709, end: 20181127
  4. ASPIRIN [Concomitant]
     Active Substance: ASPIRIN
     Indication: Thrombosis
     Dosage: 81 MG, QD
     Route: 048
     Dates: start: 201409
  5. CHOLECALCIFEROL [Concomitant]
     Active Substance: CHOLECALCIFEROL
     Indication: Supplementation therapy
     Dosage: 1000 IU, QD
     Route: 048
     Dates: start: 201504
  6. CURCUMIN [Concomitant]
     Active Substance: CURCUMIN
     Indication: Supplementation therapy
     Dosage: 1500 MG
     Route: 048
     Dates: start: 201409
  7. CHOLESTYRAMINE [Concomitant]
     Active Substance: CHOLESTYRAMINE
     Indication: Prophylaxis against diarrhoea
     Dosage: 1 DF, QD
     Route: 048
     Dates: start: 20160830
  8. CHOLESTYRAMINE [Concomitant]
     Active Substance: CHOLESTYRAMINE
     Dosage: 0.5 DF, QD
     Route: 048
     Dates: start: 20160830
  9. VITAMIN B12 [Concomitant]
     Active Substance: CYANOCOBALAMIN
     Indication: Vitamin B12 deficiency
     Dosage: 100 MG, QD
     Route: 048
     Dates: start: 2009
  10. POTASSIUM CHLORIDE [Concomitant]
     Active Substance: POTASSIUM CHLORIDE
     Indication: Product used for unknown indication
     Dosage: UNK
     Route: 065
     Dates: start: 20140329, end: 20140412
  11. MAGNESIUM SULFATE [Concomitant]
     Active Substance: MAGNESIUM SULFATE
     Indication: Product used for unknown indication
     Dosage: UNK
     Route: 065
     Dates: start: 20140329, end: 20140330

REACTIONS (1)
  - Acute lymphocytic leukaemia [Not Recovered/Not Resolved]

NARRATIVE: CASE EVENT DATE: 20210606
